FAERS Safety Report 9557407 (Version 1)
Quarter: 2013Q3

REPORT INFORMATION
  Report Type: Spontaneous
  Country: US (occurrence: None)
  Receive Date: 20130726
  Receipt Date: 20130726
  Transmission Date: 20140515
  Serious: Yes (Hospitalization)
  Sender: FDA-Public Use
  Company Number: UTC-022867

PATIENT
  Age: 26 Year
  Sex: Female
  Weight: 110 kg

DRUGS (3)
  1. REMODULIN [Suspect]
     Indication: PULMONARY ARTERIAL HYPERTENSION
     Dosage: 123.84 UG/KG (0.086 UG/KG, 1 IN 1 MIN), SUBCUTANEOUS
     Route: 058
     Dates: start: 20070112
  2. ADCIRCA (TADALAFIL) [Concomitant]
  3. TRACLEER (BOSENTAN) [Concomitant]

REACTIONS (2)
  - Pulmonary hypertension [None]
  - Condition aggravated [None]
